FAERS Safety Report 13767799 (Version 2)
Quarter: 2017Q3

REPORT INFORMATION
  Report Type: Spontaneous
  Country: US (occurrence: US)
  Receive Date: 20170719
  Receipt Date: 20170721
  Transmission Date: 20171127
  Serious: Yes (Hospitalization)
  Sender: FDA-Public Use
  Company Number: US-PFIZER INC-2017307813

PATIENT
  Age: 33 Year
  Sex: Male
  Weight: 65.77 kg

DRUGS (1)
  1. GEODON [Suspect]
     Active Substance: ZIPRASIDONE HYDROCHLORIDE\ZIPRASIDONE MESYLATE
     Indication: SCHIZOPHRENIA
     Dosage: UNK
     Dates: start: 2016

REACTIONS (5)
  - Delusional perception [Unknown]
  - Hyperphagia [Unknown]
  - Psychotic disorder [Unknown]
  - Drug ineffective [Unknown]
  - Weight increased [Unknown]
